FAERS Safety Report 5814602-9 (Version None)
Quarter: 2008Q3

REPORT INFORMATION
  Report Type: 
  Country: None (occurrence: None)
  Receive Date: 20080718
  Receipt Date: 20071126
  Transmission Date: 20090109
  Serious: No
  Sender: FDA-Public Use
  Company Number: US-KINGPHARMUSA00001-K200701516

PATIENT

DRUGS (3)
  1. LEVOXYL [Suspect]
     Indication: THYROID DISORDER
     Dosage: 25 MCG, UNK
     Dates: start: 20071101
  2. TYLENOL (CAPLET) [Concomitant]
  3. ASPIRIN [Concomitant]

REACTIONS (2)
  - INSOMNIA [None]
  - MYALGIA [None]
